FAERS Safety Report 6058991-1 (Version None)
Quarter: 2009Q1

REPORT INFORMATION
  Report Type: 
  Country: None (occurrence: None)
  Receive Date: 20090130
  Receipt Date: 20090123
  Transmission Date: 20090719
  Serious: Yes (Hospitalization)
  Sender: FDA-Public Use
  Company Number: A0765750A

PATIENT
  Age: 47 Year
  Sex: Male
  Weight: 72.7 kg

DRUGS (10)
  1. AVANDIA [Suspect]
     Dosage: 4MG PER DAY
     Route: 048
     Dates: start: 19990101, end: 20070601
  2. ATENOLOL [Concomitant]
  3. TOPROL-XL [Concomitant]
  4. CELEBREX [Concomitant]
  5. ZOCOR [Concomitant]
  6. SIMVASTATIN [Concomitant]
  7. LIPITOR [Concomitant]
  8. ENALAPRIL MALEATE [Concomitant]
  9. LISINOPRIL [Concomitant]
  10. PREVACID [Concomitant]

REACTIONS (2)
  - HEART INJURY [None]
  - MYOCARDIAL INFARCTION [None]
